FAERS Safety Report 15611000 (Version 1)
Quarter: 2018Q4

REPORT INFORMATION
  Report Type: Spontaneous
  Country: US (occurrence: US)
  Receive Date: 20181113
  Receipt Date: 20181113
  Transmission Date: 20190205
  Serious: No
  Sender: FDA-Public Use
  Company Number: US-ROCHE-2042008

PATIENT
  Sex: Female

DRUGS (1)
  1. HERCEPTIN [Suspect]
     Active Substance: TRASTUZUMAB
     Indication: BREAST CANCER
     Dosage: 287MG (4MG/KG)
     Route: 042
     Dates: start: 20170201

REACTIONS (7)
  - Nasal congestion [Unknown]
  - Scab [Unknown]
  - Musculoskeletal stiffness [Unknown]
  - Epistaxis [Unknown]
  - Hot flush [Unknown]
  - Nasal discomfort [Unknown]
  - Rhinorrhoea [Unknown]
